FAERS Safety Report 6188302-2 (Version None)
Quarter: 2009Q2

REPORT INFORMATION
  Report Type: 
  Country: None (occurrence: None)
  Receive Date: 20090513
  Receipt Date: 20090430
  Transmission Date: 20091009
  Serious: Yes (Other)
  Sender: FDA-Public Use
  Company Number: JP-PFIZER INC-2009209243

PATIENT
  Age: 26 Year

DRUGS (3)
  1. ZOLOFT [Suspect]
     Indication: APATHY
     Dosage: UNK
     Route: 048
     Dates: start: 20090318
  2. WYPAX [Concomitant]
     Indication: APATHY
     Route: 048
  3. WYPAX [Concomitant]
     Indication: FLASHBACK

REACTIONS (5)
  - DEPRESSED LEVEL OF CONSCIOUSNESS [None]
  - DYSARTHRIA [None]
  - FALL [None]
  - GAIT DISTURBANCE [None]
  - HEAD INJURY [None]
